FAERS Safety Report 20391466 (Version 1)
Quarter: 2022Q1

REPORT INFORMATION
  Report Type: Spontaneous
  Country: US (occurrence: None)
  Receive Date: 20220128
  Receipt Date: 20220128
  Transmission Date: 20220423
  Serious: Yes (Hospitalization)
  Sender: FDA-Public Use
  Company Number: US-FRESENIUS KABI-FK202200834

PATIENT
  Age: 59 Year
  Sex: Female

DRUGS (7)
  1. MESNA [Suspect]
     Active Substance: MESNA
     Indication: Product used for unknown indication
     Dosage: 300 MG/M2 CYCLIC (REGIMEN A: 300MG/M2 IV DAILY OVER 24 HOURS FOR 3 DAYS ON DAYS 1-3)
     Route: 042
  2. INOTUZUMAB OZOGAMICIN [Suspect]
     Active Substance: INOTUZUMAB OZOGAMICIN
     Indication: Acute lymphocytic leukaemia
     Dosage: 0.3 MG/M2 CYCLIC (REGIMEN A: IV OVER 1 HOUR ON DAYS 2 AND 8 OF CYCLES 1 AND 3 (APPROXIMATE))
     Route: 042
     Dates: start: 20210918
  3. VINCRISTINE SULFATE [Suspect]
     Active Substance: VINCRISTINE SULFATE
     Indication: Product used for unknown indication
     Dosage: 2 MG CYCLIC (REGIMEN A: 2MG IV DAY 1 AND DAY 8 (APPROXIMATE))
     Route: 042
  4. PEGFILGRASTIM [Suspect]
     Active Substance: PEGFILGRASTIM
     Indication: Product used for unknown indication
     Dosage: 6 MG CYCLIC (REGIMEN A: 6 MG SUBQ (OR FILGRASTIM 5-10 MCG/KG DAILY) ON DAY 4 UNTIL RECOVERY OF GRANU
     Route: 058
  5. RITUXIMAB [Suspect]
     Active Substance: RITUXIMAB
     Indication: Product used for unknown indication
     Dosage: 375 MG/M2 CYCLIC (REGIMEN A: 375MG/M2 IV ON DAY 2 AND DAY 8 OF CYCLES 1 AND 3)
     Route: 042
  6. CYCLOPHOSPHAMIDE [Suspect]
     Active Substance: CYCLOPHOSPHAMIDE
     Indication: Product used for unknown indication
     Dosage: 150 MG/M2 CYCLIC (REGIMEN A: 150MG/M2 IV OVER 3 HOURS TWICE A DAY ON DAYS 1-3)
     Route: 042
  7. DEXAMETHASONE [Suspect]
     Active Substance: DEXAMETHASONE
     Indication: Product used for unknown indication
     Dosage: 20 MG CYCLIC (REGIMEN A: 20MG IV DAILY FOR 4 DAYS ON DAYS 1-4 AND DAYS 11-14 (APPROXIMATE))
     Route: 042

REACTIONS (1)
  - Confusional state [Recovered/Resolved]

NARRATIVE: CASE EVENT DATE: 20211206
